FAERS Safety Report 12826673 (Version 1)
Quarter: 2016Q4

REPORT INFORMATION
  Report Type: Spontaneous
  Country: US (occurrence: US)
  Receive Date: 20161007
  Receipt Date: 20161007
  Transmission Date: 20170207
  Serious: No
  Sender: FDA-Public Use
  Company Number: US-WATSON-2016-10611

PATIENT
  Sex: Male
  Weight: 104 kg

DRUGS (2)
  1. FENTANYL-25 (WATSON LABORATORIES) [Suspect]
     Active Substance: FENTANYL
     Indication: PAIN
     Dosage: 25 ?G, Q1H, APPLIES PATCH EVERY 3 DAYS
     Route: 062
  2. FENTANYL SANDOZ [Concomitant]
     Active Substance: FENTANYL
     Indication: PAIN
     Dosage: UNK, UNKNOWN
     Route: 062

REACTIONS (4)
  - Fall [Not Recovered/Not Resolved]
  - Somnolence [Recovered/Resolved]
  - Drug effect incomplete [Not Recovered/Not Resolved]
  - Balance disorder [Not Recovered/Not Resolved]
